FAERS Safety Report 9534845 (Version 2)
Quarter: 2013Q3

REPORT INFORMATION
  Report Type: Spontaneous
  Country: US (occurrence: US)
  Receive Date: 20130918
  Receipt Date: 20130918
  Transmission Date: 20140515
  Serious: No
  Sender: FDA-Public Use
  Company Number: US-PURDUE-USA-2011-0076990

PATIENT
  Sex: Male
  Weight: 88.44 kg

DRUGS (1)
  1. BUTRANS [Suspect]
     Indication: PRODUCT USED FOR UNKNOWN INDICATION
     Dosage: 10 MG, Q1H
     Route: 062
     Dates: start: 20110816

REACTIONS (1)
  - Chest pain [Recovered/Resolved]
